FAERS Safety Report 11356930 (Version 1)
Quarter: 2015Q3

REPORT INFORMATION
  Report Type: Spontaneous
  Country: US (occurrence: US)
  Receive Date: 20150803
  Receipt Date: 20150803
  Transmission Date: 20151125
  Serious: No
  Sender: FDA-Public Use
  Company Number: US-ELI_LILLY_AND_COMPANY-US201204002558

PATIENT
  Age: 41 Year
  Sex: Male
  Weight: 92.97 kg

DRUGS (8)
  1. NEURONTIN [Concomitant]
     Active Substance: GABAPENTIN
     Dosage: 600 MG, EACH EVENING
  2. CAMPRAL [Concomitant]
     Active Substance: ACAMPROSATE CALCIUM
     Dosage: 666 MG, TID
  3. ATIVAN [Concomitant]
     Active Substance: LORAZEPAM
     Dosage: 2 MG, UNK
  4. LISINOPRIL. [Concomitant]
     Active Substance: LISINOPRIL
     Dosage: 10 MG, QD
  5. PHENERGAN [Concomitant]
     Active Substance: PROMETHAZINE HYDROCHLORIDE
     Dosage: 50 MG, PRN
  6. LIBRIUM [Concomitant]
     Active Substance: CHLORDIAZEPOXIDE HYDROCHLORIDE
     Dosage: 25 MG, EACH EVENING
  7. TRAZODONE [Concomitant]
     Active Substance: TRAZODONE HYDROCHLORIDE
     Indication: ANXIETY
     Dosage: 50 MG, PRN
  8. ZYPREXA [Suspect]
     Active Substance: OLANZAPINE
     Indication: SCHIZOAFFECTIVE DISORDER
     Dosage: UNK, UNKNOWN

REACTIONS (5)
  - Weight increased [Unknown]
  - Hypoglycaemia [Unknown]
  - Blood cholesterol increased [Unknown]
  - Low density lipoprotein increased [Unknown]
  - Prescribed overdose [Unknown]

NARRATIVE: CASE EVENT DATE: 201104
